FAERS Safety Report 8518549-9 (Version None)
Quarter: 2012Q3

REPORT INFORMATION
  Report Type: 
  Country: None (occurrence: None)
  Receive Date: 20120718
  Receipt Date: 20120510
  Transmission Date: 20120928
  Serious: No
  Sender: FDA-Public Use
  Company Number: US-BRISTOL-MYERS SQUIBB COMPANY-16589582

PATIENT
  Age: 83 Year
  Sex: Male

DRUGS (3)
  1. CYCLOSPORINE [Concomitant]
     Route: 047
  2. ANDROGEL [Suspect]
     Indication: BLOOD TESTOSTERONE DECREASED
     Dosage: 1 DF: 2 PUMPS
     Dates: start: 20111018, end: 20120309
  3. COUMADIN [Suspect]
     Indication: HEART RATE IRREGULAR
     Dosage: 1 DF:4/3MG ALTERNATING EVERY OTHER DAY,THERAPY DATES:2000-29FEB12:ONGOING
     Dates: start: 20000101

REACTIONS (2)
  - COAGULOPATHY [None]
  - HAEMATOCHEZIA [None]
